FAERS Safety Report 15193646 (Version 2)
Quarter: 2018Q3

REPORT INFORMATION
  Report Type: Spontaneous
  Country: SE (occurrence: SE)
  Receive Date: 20180725
  Receipt Date: 20180808
  Transmission Date: 20181010
  Serious: No
  Sender: FDA-Public Use
  Company Number: SE-ASTELLAS-2018US028511

PATIENT
  Sex: Female

DRUGS (1)
  1. BETMIGA [Suspect]
     Active Substance: MIRABEGRON
     Indication: URGE INCONTINENCE
     Dosage: UNK, UNKNOWN FREQ.
     Route: 065

REACTIONS (2)
  - Dizziness [Recovered/Resolved]
  - Nausea [Unknown]
